FAERS Safety Report 11963908 (Version 1)
Quarter: 2016Q1

REPORT INFORMATION
  Report Type: Spontaneous
  Country: US (occurrence: None)
  Receive Date: 20160122
  Receipt Date: 20160122
  Transmission Date: 20160526
  Serious: Yes (Other)
  Sender: FDA-Public Use
  Company Number: None

PATIENT
  Age: 65 Year
  Sex: Female

DRUGS (3)
  1. LORTAB [Concomitant]
     Active Substance: ACETAMINOPHEN\HYDROCODONE BITARTRATE
  2. METHYLPREDNISOLONE 4 MG CADISTA [Suspect]
     Active Substance: METHYLPREDNISOLONE
     Indication: RASH
     Dosage: TAPER REGIMEN, THREE TIMES DAILY, TAKEN BY MOUTH
     Dates: start: 20160120, end: 20160121
  3. MVI CENTRUM SILVER [Concomitant]

REACTIONS (3)
  - Rash [None]
  - Swelling face [None]
  - Local swelling [None]

NARRATIVE: CASE EVENT DATE: 20160121
